FAERS Safety Report 16269941 (Version 1)
Quarter: 2019Q2

REPORT INFORMATION
  Report Type: Report from Study
  Country: US (occurrence: US)
  Receive Date: 20190503
  Receipt Date: 20190503
  Transmission Date: 20190711
  Serious: Yes (Other)
  Sender: FDA-Public Use
  Company Number: US-MYLANLABS-2019M1042269

PATIENT
  Age: 59 Year
  Sex: Male

DRUGS (7)
  1. IRINOTECAN [Suspect]
     Active Substance: IRINOTECAN
     Indication: RECTOSIGMOID CANCER METASTATIC
     Dosage: DURING THE FIRST CYCLES OF THE FIRST (2 MONTHS, 4 CYCLES) AND SECOND THERAPY (10 MONTHS, 17 CYCLES)
     Route: 065
  2. FOLINIC ACID [Suspect]
     Active Substance: LEUCOVORIN
     Dosage: SECOND THERAPY, 17 CYCLES
     Route: 065
  3. FLUOROURACIL. [Suspect]
     Active Substance: FLUOROURACIL
     Indication: RECTOSIGMOID CANCER METASTATIC
     Dosage: DURING THE FIRST AND LAST CYCLES OF THE FIRST (2 MONTHS; 4 CYCLES) AND SECOND (10 MONTHS; 17 CYCL...
     Route: 065
  4. FLUOROURACIL. [Suspect]
     Active Substance: FLUOROURACIL
     Dosage: DURING THE LAST CYCLE OF THE SECOND THERAPY
     Route: 065
  5. ZALTRAP [Suspect]
     Active Substance: ZIV-AFLIBERCEPT
     Indication: RECTOSIGMOID CANCER METASTATIC
     Dosage: DURING THE FIRST AND LAST CYCLES OF THE FIRST (2 MONTHS; 4 CYCLES) AND SECOND THERAPY (10 MONTHS;...
     Route: 065
  6. FOLINIC ACID [Suspect]
     Active Substance: LEUCOVORIN
     Indication: RECTOSIGMOID CANCER METASTATIC
     Dosage: FIRST THERAPY, 4 CYCLES
     Route: 065
  7. IRINOTECAN [Suspect]
     Active Substance: IRINOTECAN
     Dosage: DURING THE LAST CYCLE OF THE SECOND THERAPY
     Route: 065

REACTIONS (1)
  - Hyperbilirubinaemia [Unknown]
